FAERS Safety Report 6801683-9 (Version None)
Quarter: 2010Q2

REPORT INFORMATION
  Report Type: 
  Country: None (occurrence: None)
  Receive Date: 20100624
  Receipt Date: 20100617
  Transmission Date: 20101027
  Serious: Yes (Hospitalization)
  Sender: FDA-Public Use
  Company Number: WAES 0809DEU00131

PATIENT
  Age: 37 Year
  Sex: Male

DRUGS (6)
  1. SINGULAIR [Suspect]
     Indication: ASTHMA
     Dosage: 10 MG/DAILY, PO
     Route: 048
  2. ACETYLCYSTEINE [Concomitant]
  3. ALBUTEROL [Concomitant]
  4. BUDESONIDE (+) FORMOTEROL FUMARATE [Concomitant]
  5. PREDNISONE TAB [Concomitant]
  6. RAMIPRIL [Concomitant]

REACTIONS (13)
  - ALLERGIC GRANULOMATOUS ANGIITIS [None]
  - BORRELIA TEST POSITIVE [None]
  - BRONCHITIS [None]
  - CHEST PAIN [None]
  - ECG SIGNS OF VENTRICULAR HYPERTROPHY [None]
  - EOSINOPHILIC MYOCARDITIS [None]
  - EPSTEIN-BARR VIRUS ANTIBODY POSITIVE [None]
  - MYOCARDIAL INFARCTION [None]
  - PERICARDIAL EFFUSION [None]
  - PLEURAL EFFUSION [None]
  - RESPIRATORY TRACT INFECTION [None]
  - RIGHT VENTRICULAR FAILURE [None]
  - SIMPLEX VIRUS TEST POSITIVE [None]
